FAERS Safety Report 12487118 (Version 1)
Quarter: 2016Q2

REPORT INFORMATION
  Report Type: Spontaneous
  Country: US (occurrence: None)
  Receive Date: 20160621
  Receipt Date: 20160621
  Transmission Date: 20160815
  Serious: Yes (Hospitalization)
  Sender: FDA-Public Use
  Company Number: None

PATIENT
  Age: 33 Year
  Sex: Female
  Weight: 55.7 kg

DRUGS (1)
  1. ERIBULIN, LAST DOSE 16/JUN/2016 [Suspect]
     Active Substance: ERIBULIN
     Indication: CERVIX CARCINOMA
     Dosage: 1.4MG 1M2 DAY 1 + 8 IV EVERY 21 DAYS
     Route: 042
     Dates: start: 20160525, end: 20160616

REACTIONS (2)
  - Anaemia [None]
  - Dyspnoea [None]

NARRATIVE: CASE EVENT DATE: 20160617
